FAERS Safety Report 18837749 (Version 1)
Quarter: 2021Q1

REPORT INFORMATION
  Report Type: Spontaneous
  Country: US (occurrence: US)
  Receive Date: 20210203
  Receipt Date: 20210203
  Transmission Date: 20210419
  Serious: No
  Sender: FDA-Public Use
  Company Number: US-ALLERGAN-2020225US

PATIENT
  Age: 41 Year
  Sex: Female
  Weight: 85.26 kg

DRUGS (5)
  1. BOTOX [Suspect]
     Active Substance: ONABOTULINUMTOXINA
     Indication: TORTICOLLIS
     Dosage: 105 UNITS, SINGLE
     Route: 065
     Dates: start: 20200411, end: 20200411
  2. CLONAZEPAM. [Concomitant]
     Active Substance: CLONAZEPAM
     Dosage: 1 DF, QHS
     Route: 048
     Dates: start: 20200418
  3. BACLOFEN. [Concomitant]
     Active Substance: BACLOFEN
     Dosage: 1 DF, TID
     Route: 048
     Dates: start: 20200418
  4. COGENTIN [Concomitant]
     Active Substance: BENZTROPINE MESYLATE
     Dosage: 1 DF, BID
     Route: 048
     Dates: start: 20200418
  5. BOTOX [Suspect]
     Active Substance: ONABOTULINUMTOXINA
     Dosage: 105 UNITS, SINGLE
     Route: 065
     Dates: start: 20200330, end: 20200330

REACTIONS (7)
  - Asthenia [Recovered/Resolved]
  - Tremor [Recovered/Resolved]
  - Dizziness [Recovered/Resolved]
  - Electrolyte imbalance [Recovered/Resolved]
  - Vomiting [Recovered/Resolved]
  - SARS-CoV-1 test positive [Unknown]
  - Headache [Recovered/Resolved]

NARRATIVE: CASE EVENT DATE: 20200424
